FAERS Safety Report 7397169-6 (Version None)
Quarter: 2011Q2

REPORT INFORMATION
  Report Type: 
  Country: None (occurrence: None)
  Receive Date: 20110406
  Receipt Date: 20110331
  Transmission Date: 20111010
  Serious: Yes (Disabling)
  Sender: FDA-Public Use
  Company Number: B0710775A

PATIENT
  Sex: Female
  Weight: 16 kg

DRUGS (5)
  1. CARBOPLATIN [Suspect]
     Indication: STEM CELL TRANSPLANT
     Dosage: 340MGM2 PER DAY
     Route: 042
     Dates: start: 20090319, end: 20090322
  2. ALKERAN [Suspect]
     Indication: STEM CELL TRANSPLANT
     Dosage: 100MGM2 PER DAY
     Route: 042
     Dates: start: 20090317, end: 20090318
  3. VEPESID [Concomitant]
     Indication: STEM CELL TRANSPLANT
     Dosage: 200MGM2 PER DAY
     Route: 042
     Dates: start: 20090319, end: 20090322
  4. FUNGUARD [Concomitant]
     Dosage: 16MG PER DAY
     Route: 042
     Dates: start: 20090317, end: 20090406
  5. FLUDARABINE PHOSPHATE [Suspect]
     Route: 065

REACTIONS (5)
  - ALTERED STATE OF CONSCIOUSNESS [None]
  - PYREXIA [None]
  - C-REACTIVE PROTEIN INCREASED [None]
  - CONVULSION [None]
  - MUCOUS MEMBRANE DISORDER [None]
